FAERS Safety Report 6023668-5 (Version None)
Quarter: 2008Q4

REPORT INFORMATION
  Report Type: 
  Country: None (occurrence: None)
  Receive Date: 20081222
  Receipt Date: 20081011
  Transmission Date: 20090506
  Serious: No
  Sender: FDA-Public Use
  Company Number: ALL1-2008-02956

PATIENT
  Age: 7 Year
  Sex: Male

DRUGS (2)
  1. VYVANSE [Suspect]
     Indication: ATTENTION DEFICIT/HYPERACTIVITY DISORDER
     Dosage: 20 MG, 1X/DAY:QD, ORAL : 20 MG, 1X/DAY:QD, ORAL
     Route: 048
     Dates: start: 20080930, end: 20081007
  2. VYVANSE [Suspect]
     Indication: ATTENTION DEFICIT/HYPERACTIVITY DISORDER
     Dosage: 20 MG, 1X/DAY:QD, ORAL : 20 MG, 1X/DAY:QD, ORAL
     Route: 048
     Dates: start: 20081009

REACTIONS (1)
  - TIC [None]
